FAERS Safety Report 7054042-0 (Version None)
Quarter: 2010Q4

REPORT INFORMATION
  Report Type: 
  Country: None (occurrence: None)
  Receive Date: 20101020
  Receipt Date: 20101019
  Transmission Date: 20110411
  Serious: Yes (Other)
  Sender: FDA-Public Use
  Company Number: US-BRISTOL-MYERS SQUIBB COMPANY-15284920

PATIENT
  Age: 36 Year
  Sex: Male

DRUGS (1)
  1. ABILIFY [Suspect]
     Indication: BIPOLAR DISORDER
     Dosage: RESUMED ON 25AUG2010
     Route: 048
     Dates: start: 20100525

REACTIONS (5)
  - ANXIETY [None]
  - DEPRESSED MOOD [None]
  - HYPERHIDROSIS [None]
  - MANIA [None]
  - TREATMENT NONCOMPLIANCE [None]
